FAERS Safety Report 4808823-1 (Version None)
Quarter: 2005Q4

REPORT INFORMATION
  Report Type: 
  Country: None (occurrence: None)
  Receive Date: 20051021
  Receipt Date: 20030708
  Transmission Date: 20060501
  Serious: No
  Sender: FDA-Public Use
  Company Number: JP_030701360

PATIENT
  Sex: Male

DRUGS (2)
  1. ZYPREXA [Suspect]
     Indication: SCHIZOPHRENIA
     Dosage: 10 MG DAY
     Dates: start: 20030401, end: 20030501
  2. GATIFLOXACIN [Concomitant]

REACTIONS (1)
  - PLATELET COUNT DECREASED [None]
